FAERS Safety Report 20395674 (Version 4)
Quarter: 2022Q2

REPORT INFORMATION
  Report Type: Report from Study
  Country: FR (occurrence: FR)
  Receive Date: 20220130
  Receipt Date: 20220602
  Transmission Date: 20220720
  Serious: Yes (Death, Hospitalization, Other)
  Sender: FDA-Public Use
  Company Number: FR-BRISTOL-MYERS SQUIBB COMPANY-BMS-2022-008706

PATIENT
  Age: 75 Year
  Sex: Male

DRUGS (1)
  1. OPDIVO [Suspect]
     Active Substance: NIVOLUMAB
     Indication: Head and neck cancer
     Dosage: 240 MILLIGRAM, Q2WK
     Route: 042
     Dates: start: 20210705, end: 20210927

REACTIONS (4)
  - General physical health deterioration [Fatal]
  - Malignant neoplasm progression [Fatal]
  - Pneumonia aspiration [Unknown]
  - Escherichia infection [Unknown]

NARRATIVE: CASE EVENT DATE: 20211116
